FAERS Safety Report 24708002 (Version 1)
Quarter: 2024Q4

REPORT INFORMATION
  Report Type: Spontaneous
  Country: GB (occurrence: GB)
  Receive Date: 20241206
  Receipt Date: 20241206
  Transmission Date: 20250114
  Serious: Yes (Hospitalization, Other)
  Sender: B BRAUN
  Company Number: GB-B.Braun Medical Inc.-2166644

PATIENT
  Age: 69 Year
  Sex: Female

DRUGS (16)
  1. LIDOCAINE HYDROCHLORIDE [Suspect]
     Active Substance: LIDOCAINE HYDROCHLORIDE
     Indication: Pain
  2. RANOLAZINE [Concomitant]
     Active Substance: RANOLAZINE
  3. Bempedoic acid and ezetimibe (Specific?Substance SUB8456) [Concomitant]
  4. AMOXICILLIN [Concomitant]
     Active Substance: AMOXICILLIN
  5. ASPIRIN [Concomitant]
     Active Substance: ASPIRIN
  6. PRASUGREL [Concomitant]
     Active Substance: PRASUGREL
  7. METFORMIN [Concomitant]
     Active Substance: METFORMIN HYDROCHLORIDE
  8. INSULIN ASPART [Concomitant]
     Active Substance: INSULIN ASPART
  9. AMLODIPINE [Concomitant]
     Active Substance: AMLODIPINE BESYLATE
  10. Bempedoic acid and ezetimibe (Specific?Substance SUB12581) [Concomitant]
  11. BISOPROLOL FUMARATE [Concomitant]
     Active Substance: BISOPROLOL FUMARATE
  12. FAMOTIDINE [Concomitant]
     Active Substance: FAMOTIDINE
  13. FERROUS FUMARATE [Concomitant]
  14. Accord-uk isosorbide mononitrate [Concomitant]
  15. MAGNESIUM [Concomitant]
     Active Substance: MAGNESIUM
  16. RAMIPRIL [Concomitant]
     Active Substance: RAMIPRIL

REACTIONS (2)
  - Acute myocardial infarction [Recovering/Resolving]
  - Off label use [Recovering/Resolving]
